FAERS Safety Report 19323571 (Version 1)
Quarter: 2021Q2

REPORT INFORMATION
  Report Type: Report from Study
  Country: US (occurrence: US)
  Receive Date: 20210528
  Receipt Date: 20210528
  Transmission Date: 20210717
  Serious: Yes (Hospitalization)
  Sender: FDA-Public Use
  Company Number: US-GILEAD-2021-0533242

PATIENT
  Age: 75 Year
  Sex: Female

DRUGS (23)
  1. LOSARTAN. [Concomitant]
     Active Substance: LOSARTAN
  2. BISACODYL. [Concomitant]
     Active Substance: BISACODYL
  3. DEXTROSE. [Concomitant]
     Active Substance: DEXTROSE
  4. DOCUSATE [Concomitant]
     Active Substance: DOCUSATE
  5. MELATONIN [Concomitant]
     Active Substance: MELATONIN
  6. SENNAE [Concomitant]
  7. SILDENAFIL. [Concomitant]
     Active Substance: SILDENAFIL
  8. MAGNESIUM [Concomitant]
     Active Substance: MAGNESIUM
  9. ONDANSETRON [Concomitant]
     Active Substance: ONDANSETRON
  10. BUMETANIDE. [Concomitant]
     Active Substance: BUMETANIDE
  11. ISOSORBIDE. [Concomitant]
     Active Substance: ISOSORBIDE
  12. MIRTAZAPINE. [Concomitant]
     Active Substance: MIRTAZAPINE
  13. POTASSIUM [Concomitant]
     Active Substance: POTASSIUM
  14. REMODULIN [Concomitant]
     Active Substance: TREPROSTINIL
  15. AMLODIPINE [Concomitant]
     Active Substance: AMLODIPINE BESYLATE
  16. ESCITALOPRAM [Concomitant]
     Active Substance: ESCITALOPRAM OXALATE
  17. AMBRISENTAN [Suspect]
     Active Substance: AMBRISENTAN
     Indication: PULMONARY ARTERIAL HYPERTENSION
     Dosage: 10 MG, QD
     Route: 065
     Dates: start: 20190307
  18. MONTELUKAST [Concomitant]
     Active Substance: MONTELUKAST SODIUM
  19. TYLENOL [Concomitant]
     Active Substance: ACETAMINOPHEN
  20. ASPIRINE [Concomitant]
     Active Substance: ASPIRIN
  21. LIDOCAINE. [Concomitant]
     Active Substance: LIDOCAINE
  22. PANTOPRAZOLE [Concomitant]
     Active Substance: PANTOPRAZOLE
  23. UPTRAVI [Concomitant]
     Active Substance: SELEXIPAG

REACTIONS (2)
  - Oxygen saturation decreased [Unknown]
  - Dyspnoea [Not Recovered/Not Resolved]
